FAERS Safety Report 9178517 (Version 1)
Quarter: 2012Q4

REPORT INFORMATION
  Report Type: 
  Country: US (occurrence: US)
  Receive Date: 20121029
  Receipt Date: 20121029
  Transmission Date: 20130627
  Serious: No
  Sender: FDA-Public Use
  Company Number: US-AMGEN-USASP2012053495

PATIENT
  Age: 55 Year
  Sex: Female
  Weight: 126.8 kg

DRUGS (12)
  1. ENBREL [Suspect]
     Indication: PRODUCT USED FOR UNKNOWN INDICATION
     Dosage: 50 mg, qwk
     Route: 058
  2. CYMBALTA [Concomitant]
     Dosage: 20 mg, UNK
  3. CENTRUM SILVER                     /02363801/ [Concomitant]
  4. METHOTREXATE [Concomitant]
     Dosage: 2.5 mg, UNK
  5. SYNTHROID [Concomitant]
     Dosage: 100 mcg, UNK
  6. TRAMADOL HCL [Concomitant]
     Dosage: 50 mg, UNK
  7. FOLIC ACID [Concomitant]
     Dosage: 1 mg, UNK
  8. NEXIUM                             /01479302/ [Concomitant]
     Dosage: 20 mg, UNK
  9. MIRAPEX [Concomitant]
     Dosage: 1 mg, UNK
  10. CINNAMON                           /01647501/ [Concomitant]
     Dosage: 500 mg, UNK
  11. FISH OIL [Concomitant]
  12. TYLENOL /00020001/ [Concomitant]
     Dosage: 650 mg, UNK

REACTIONS (1)
  - Rash maculo-papular [Unknown]
